FAERS Safety Report 18216266 (Version 1)
Quarter: 2020Q3

REPORT INFORMATION
  Report Type: Spontaneous
  Country: CH (occurrence: CH)
  Receive Date: 20200901
  Receipt Date: 20200901
  Transmission Date: 20201103
  Serious: Yes (Hospitalization, Other)
  Sender: FDA-Public Use
  Company Number: CH-AMGEN-CHESP2020126187

PATIENT
  Age: 17 Year
  Sex: Male
  Weight: 57 kg

DRUGS (3)
  1. BLINCYTO [Suspect]
     Active Substance: BLINATUMOMAB
     Indication: B PRECURSOR TYPE ACUTE LEUKAEMIA
     Dosage: 97.92 MICROGRAM, EVERY FOUR DAYS
     Route: 042
     Dates: start: 20200724, end: 20200731
  2. DEXAMETHASONE. [Concomitant]
     Active Substance: DEXAMETHASONE
     Dosage: UNK
  3. RISPERDAL [Concomitant]
     Active Substance: RISPERIDONE

REACTIONS (3)
  - Pyrexia [Unknown]
  - Psychotic symptom [Recovering/Resolving]
  - Delirium [Recovering/Resolving]

NARRATIVE: CASE EVENT DATE: 2020
